FAERS Safety Report 15152226 (Version 1)
Quarter: 2018Q3

REPORT INFORMATION
  Report Type: Spontaneous
  Country: GB (occurrence: GB)
  Receive Date: 20180717
  Receipt Date: 20180717
  Transmission Date: 20181010
  Serious: Yes (Other)
  Sender: FDA-Public Use
  Company Number: GB-TEVA-2018-GB-927180

PATIENT
  Age: 38 Year
  Sex: Male
  Weight: 70 kg

DRUGS (10)
  1. FROVATRIPTAN. [Concomitant]
     Active Substance: FROVATRIPTAN
     Dosage: USE AS DIRECTED.
     Route: 065
     Dates: start: 20180430
  2. HYDROXOCOBALAMIN [Concomitant]
     Active Substance: HYDROXOCOBALAMIN
     Dosage: AS DIRECTED.
     Route: 030
     Dates: start: 20160902
  3. FULTIUM?D3 [Concomitant]
     Active Substance: CHOLECALCIFEROL
     Dosage: 1 DOSAGE FORMS DAILY;
     Route: 065
     Dates: start: 20170531, end: 20180430
  4. LONGTEC [Concomitant]
     Active Substance: OXYCODONE HYDROCHLORIDE
     Route: 065
     Dates: start: 20171020
  5. TOPIRAMATE. [Concomitant]
     Active Substance: TOPIRAMATE
     Dosage: 1 DOSAGE FORMS DAILY; AT NIGHT.
     Route: 065
     Dates: start: 20160902
  6. RIZATRIPTAN. [Concomitant]
     Active Substance: RIZATRIPTAN
     Indication: MIGRAINE
     Dosage: TAKE WHEN HAVING MIGRAINE, MAXIMUM 2 PER 24 HOURS.
     Route: 065
     Dates: start: 20171019, end: 20180430
  7. OXYCODONE HYDROCHLORIDE. [Concomitant]
     Active Substance: OXYCODONE HYDROCHLORIDE
     Dosage: 5ML UP TO MAXIMUM 4 HOURLY MAXIMUM.
     Route: 065
     Dates: start: 20160902
  8. KETAMINE [Concomitant]
     Active Substance: KETAMINE
     Route: 065
     Dates: start: 20180313
  9. CARBAMAZEPINE. [Suspect]
     Active Substance: CARBAMAZEPINE
     Route: 065
     Dates: start: 20180608
  10. PARACETAMOL [Concomitant]
     Active Substance: ACETAMINOPHEN
     Dosage: EVERY 4?6 HOURS UP TO FOUR TIME...
     Route: 065
     Dates: start: 20160902

REACTIONS (2)
  - Joint swelling [Recovered/Resolved]
  - Peripheral swelling [Unknown]

NARRATIVE: CASE EVENT DATE: 20180608
